FAERS Safety Report 10348052 (Version 1)
Quarter: 2014Q3

REPORT INFORMATION
  Report Type: Spontaneous
  Country: IN (occurrence: IN)
  Receive Date: 20140729
  Receipt Date: 20140729
  Transmission Date: 20150326
  Serious: Yes (Other)
  Sender: FDA-Public Use
  Company Number: IN-WATSON-2014-16342

PATIENT
  Age: 42 Year
  Sex: Male

DRUGS (1)
  1. METRONIDAZOLE (UNKNOWN) [Suspect]
     Active Substance: BISMUTH SUBSALICYLATE\METRONIDAZOLE\TETRACYCLINE HYDROCHLORIDE
     Indication: DIARRHOEA
     Dosage: 750 MG, DAILY
     Route: 065

REACTIONS (1)
  - Toxic encephalopathy [Recovered/Resolved]
